FAERS Safety Report 10595617 (Version 1)
Quarter: 2014Q4

REPORT INFORMATION
  Report Type: Spontaneous
  Country: JP (occurrence: JP)
  Receive Date: 20141120
  Receipt Date: 20141120
  Transmission Date: 20150529
  Serious: Yes (Death, Other)
  Sender: FDA-Public Use
  Company Number: JP-CELGENE-JPN-2014112220

PATIENT

DRUGS (2)
  1. REVLIMID [Suspect]
     Active Substance: LENALIDOMIDE
     Route: 048
  2. DEXAMETHASONE. [Suspect]
     Active Substance: DEXAMETHASONE
     Route: 065

REACTIONS (16)
  - Diarrhoea [Unknown]
  - Thrombocytopenia [Unknown]
  - Neuropathy peripheral [Unknown]
  - Lung infection [Fatal]
  - Liver function test abnormal [Unknown]
  - Decreased appetite [Unknown]
  - Skin disorder [Unknown]
  - Neutropenia [Unknown]
  - Febrile neutropenia [Unknown]
  - Constipation [Unknown]
  - Dizziness [Unknown]
  - Nausea [Unknown]
  - Hypothyroidism [Unknown]
  - Fatigue [Unknown]
  - Sepsis [Fatal]
  - Anaemia [Unknown]
